APPROVED DRUG PRODUCT: DEFERASIROX
Active Ingredient: DEFERASIROX
Strength: 180MG
Dosage Form/Route: GRANULE;ORAL
Application: A213146 | Product #002
Applicant: PHARMOBEDIENT CONSULTING LLC
Approved: May 3, 2024 | RLD: No | RS: No | Type: DISCN